FAERS Safety Report 8903712 (Version 1)
Quarter: 2012Q4

REPORT INFORMATION
  Report Type: 
  Country: US (occurrence: US)
  Receive Date: 20121112
  Receipt Date: 20121112
  Transmission Date: 20130627
  Serious: Yes (Other)
  Sender: FDA-Public Use
  Company Number: CHPA2012US023097

PATIENT
  Age: 70 Year
  Sex: Female

DRUGS (1)
  1. MYOFLEX ANALGESIC CREME [Suspect]
     Dosage: Unk, PRN
     Route: 061

REACTIONS (10)
  - Patella fracture [Recovered/Resolved]
  - Rotator cuff syndrome [Recovered/Resolved]
  - Burning sensation [Unknown]
  - Musculoskeletal pain [Unknown]
  - Blood cholesterol increased [Not Recovered/Not Resolved]
  - Myalgia [Not Recovered/Not Resolved]
  - Muscular weakness [Not Recovered/Not Resolved]
  - Gait disturbance [Recovered/Resolved]
  - Road traffic accident [Recovered/Resolved]
  - Off label use [Unknown]
